FAERS Safety Report 6960639-6 (Version None)
Quarter: 2010Q3

REPORT INFORMATION
  Report Type: 
  Country: None (occurrence: None)
  Receive Date: 20100901
  Receipt Date: 20100820
  Transmission Date: 20110219
  Serious: Yes (Death, Other)
  Sender: FDA-Public Use
  Company Number: US-PFIZER INC-2010098146

PATIENT
  Age: 61 Year
  Sex: Male

DRUGS (3)
  1. SUTENT [Suspect]
     Indication: RENAL CELL CARCINOMA
     Dosage: 50 MG, 1X/DAY
     Route: 048
     Dates: start: 20100429, end: 20100707
  2. DILAUDID [Suspect]
     Indication: PAIN
     Route: 042
  3. COUMADIN [Concomitant]

REACTIONS (9)
  - BLOOD BILIRUBIN INCREASED [None]
  - CONFUSIONAL STATE [None]
  - DELIRIUM [None]
  - DISEASE PROGRESSION [None]
  - HAEMOPTYSIS [None]
  - PANCREATITIS [None]
  - PNEUMONIA [None]
  - RENAL CELL CARCINOMA [None]
  - TRANSAMINASES INCREASED [None]
